FAERS Safety Report 7485010-2 (Version None)
Quarter: 2011Q2

REPORT INFORMATION
  Report Type: 
  Country: None (occurrence: None)
  Receive Date: 20110517
  Receipt Date: 20110504
  Transmission Date: 20111010
  Serious: Yes (Death)
  Sender: FDA-Public Use
  Company Number: US-JNJFOC-20110408310

PATIENT
  Age: 92 Year
  Sex: Female

DRUGS (3)
  1. UNKNOWN MULTIPLE MEDICATION [Suspect]
     Indication: PRODUCT USED FOR UNKNOWN INDICATION
     Route: 065
  2. NUCYNTA [Suspect]
     Indication: PAIN
     Route: 048
  3. UNSPECIFIED BLOOD PRESSURE MEDS [Suspect]
     Indication: PRODUCT USED FOR UNKNOWN INDICATION
     Route: 065

REACTIONS (1)
  - COMPLETED SUICIDE [None]
